FAERS Safety Report 7793729-9 (Version None)
Quarter: 2011Q4

REPORT INFORMATION
  Report Type: 
  Country: None (occurrence: None)
  Receive Date: 20111003
  Receipt Date: 20110927
  Transmission Date: 20120403
  Serious: Yes (Hospitalization)
  Sender: FDA-Public Use
  Company Number: US-GILEAD-2011-0044225

PATIENT

DRUGS (3)
  1. LETAIRIS [Suspect]
     Indication: LUNG DISORDER
  2. LETAIRIS [Suspect]
     Indication: HYPOXIA
  3. LETAIRIS [Suspect]
     Indication: PULMONARY HYPERTENSION
     Dosage: 10 MG, UNK
     Route: 048
     Dates: start: 20100512

REACTIONS (1)
  - BRONCHITIS [None]
